FAERS Safety Report 4922101-1 (Version None)
Quarter: 2006Q1

REPORT INFORMATION
  Report Type: 
  Country: None (occurrence: None)
  Receive Date: 20060222
  Receipt Date: 20060222
  Transmission Date: 20060701
  Serious: Yes (Hospitalization)
  Sender: FDA-Public Use
  Company Number: None

PATIENT
  Age: 65 Year
  Sex: Male

DRUGS (9)
  1. WARFARIN SODIUM [Suspect]
     Indication: ATRIAL FIBRILLATION
     Dosage: 2.5 MG DAILY X 1.25 MG MON, THURS
     Dates: start: 20050808
  2. COREG [Concomitant]
  3. LASIX [Concomitant]
  4. LANOXIN [Concomitant]
  5. COUMADIN [Concomitant]
  6. POTASSIUM [Concomitant]
  7. MICARDIS [Concomitant]
  8. LEVOTHYROXINE SODIUM [Concomitant]
  9. LITHONATE [Concomitant]

REACTIONS (4)
  - HAEMATOMA [None]
  - HAEMATURIA [None]
  - INTERNATIONAL NORMALISED RATIO INCREASED [None]
  - RENAL CELL CARCINOMA STAGE UNSPECIFIED [None]
